FAERS Safety Report 6122148-6 (Version None)
Quarter: 2009Q1

REPORT INFORMATION
  Report Type: 
  Country: None (occurrence: None)
  Receive Date: 20090318
  Receipt Date: 20090309
  Transmission Date: 20090719
  Serious: Yes (Hospitalization)
  Sender: FDA-Public Use
  Company Number: PHEH2009US01491

PATIENT
  Sex: Female
  Weight: 53.968 kg

DRUGS (2)
  1. EXELON [Suspect]
     Indication: DEMENTIA ALZHEIMER'S TYPE
     Dosage: 4.6 MG, UNK
     Route: 062
     Dates: start: 20081101, end: 20090125
  2. EXELON [Suspect]
     Dosage: 9.5 MG, UNK
     Route: 062
     Dates: start: 20090125, end: 20090219

REACTIONS (5)
  - AGGRESSION [None]
  - ANGER [None]
  - ANOREXIA [None]
  - CONFUSIONAL STATE [None]
  - WEIGHT DECREASED [None]
